FAERS Safety Report 4469246-0 (Version None)
Quarter: 2004Q4

REPORT INFORMATION
  Report Type: 
  Country: None (occurrence: None)
  Receive Date: 20041008
  Receipt Date: 20030804
  Transmission Date: 20050328
  Serious: No
  Sender: FDA-Public Use
  Company Number: US-BRISTOL-MYERS SQUIBB COMPANY-12346367

PATIENT
  Age: 93 Year
  Sex: Male
  Weight: 73 kg

DRUGS (2)
  1. AVAPRO [Suspect]
     Indication: HYPERTENSION
     Route: 048
  2. WATER [Concomitant]
     Route: 048

REACTIONS (2)
  - DYSGEUSIA [None]
  - HYPOAESTHESIA [None]
